FAERS Safety Report 5152979-0 (Version None)
Quarter: 2006Q4

REPORT INFORMATION
  Report Type: 
  Country: None (occurrence: None)
  Receive Date: 20061110
  Receipt Date: 20061110
  Transmission Date: 20070319
  Serious: Yes (Hospitalization)
  Sender: FDA-Public Use
  Company Number: None

PATIENT
  Age: 19 Year
  Sex: Male
  Weight: 60 kg

DRUGS (2)
  1. TEMOZOLOMIDE       SCHERING-PLOUGH [Suspect]
     Indication: GLIOMATOSIS CEREBRI
     Dosage: 250 MG  DAILY FOR 5 DAYS  BUCCAL
     Route: 002
     Dates: start: 20040731, end: 20040802
  2. TEMOZOLOMIDE       SCHERING-PLOUGH [Suspect]
     Indication: MENINGEAL NEOPLASM
     Dosage: 250 MG  DAILY FOR 5 DAYS  BUCCAL
     Route: 002
     Dates: start: 20040731, end: 20040802

REACTIONS (11)
  - BLOOD PRESSURE INCREASED [None]
  - CONFUSIONAL STATE [None]
  - GLIOMATOSIS CEREBRI [None]
  - GRAND MAL CONVULSION [None]
  - HEADACHE [None]
  - INTENTION TREMOR [None]
  - MALIGNANT NEOPLASM PROGRESSION [None]
  - MEMORY IMPAIRMENT [None]
  - MENINGEAL NEOPLASM [None]
  - MENTAL STATUS CHANGES [None]
  - MINI MENTAL STATUS EXAMINATION ABNORMAL [None]
